FAERS Safety Report 23012313 (Version 2)
Quarter: 2023Q4

REPORT INFORMATION
  Report Type: Spontaneous
  Country: US (occurrence: US)
  Receive Date: 20230930
  Receipt Date: 20231019
  Transmission Date: 20240109
  Serious: No
  Sender: FDA-Public Use
  Company Number: US-SA-SAC20230922001303

PATIENT
  Age: 60 Year
  Sex: Male
  Weight: 122.4 kg

DRUGS (2)
  1. DUPIXENT [Suspect]
     Active Substance: DUPILUMAB
     Indication: Dermatitis atopic
     Dosage: 600 MG, 1X
     Route: 058
  2. DUPIXENT [Suspect]
     Active Substance: DUPILUMAB
     Dosage: 300 MG, QOW
     Route: 058
     Dates: end: 202301

REACTIONS (9)
  - Weight increased [Unknown]
  - Blood pressure increased [Unknown]
  - Dermatitis atopic [Unknown]
  - Rash [Unknown]
  - Skin haemorrhage [Unknown]
  - Peripheral swelling [Unknown]
  - Skin infection [Unknown]
  - Wound infection [Unknown]
  - Skin fissures [Unknown]

NARRATIVE: CASE EVENT DATE: 20230801
